FAERS Safety Report 9903895 (Version 1)
Quarter: 2014Q1

REPORT INFORMATION
  Report Type: Spontaneous
  Country: US (occurrence: US)
  Receive Date: 20140218
  Receipt Date: 20140218
  Transmission Date: 20141002
  Serious: No
  Sender: FDA-Public Use
  Company Number: US-BIOGENIDEC-2014BI014279

PATIENT
  Sex: Male

DRUGS (1)
  1. TYSABRI [Suspect]
     Indication: MULTIPLE SCLEROSIS
     Route: 042
     Dates: start: 20110225

REACTIONS (4)
  - Gingival swelling [Recovered/Resolved]
  - Post procedural complication [Recovered/Resolved]
  - Endodontic procedure [Recovered/Resolved]
  - Tooth infection [Recovered/Resolved]
